FAERS Safety Report 5042419-4 (Version None)
Quarter: 2006Q2

REPORT INFORMATION
  Report Type: 
  Country: None (occurrence: None)
  Receive Date: 20060627
  Receipt Date: 20060612
  Transmission Date: 20061013
  Serious: Yes (Hospitalization, Other)
  Sender: FDA-Public Use
  Company Number: IMP_2339_2006

PATIENT
  Age: 66 Year
  Sex: Female

DRUGS (2)
  1. FENOFIBRATE [Suspect]
     Indication: BILIARY CIRRHOSIS
     Dosage: 150 MG QDAY PO
     Route: 048
  2. URSODEOXYCHOLIC ACID [Suspect]
     Indication: HEPATIC FUNCTION ABNORMAL
     Dosage: 600 MG PO
     Route: 048

REACTIONS (8)
  - ABDOMINAL DISCOMFORT [None]
  - ANOREXIA [None]
  - BILIARY CIRRHOSIS [None]
  - EOSINOPHIL COUNT INCREASED [None]
  - GRANULOMATOUS LIVER DISEASE [None]
  - HEPATIC TRAUMA [None]
  - LYMPHOCYTE STIMULATION TEST POSITIVE [None]
  - PYREXIA [None]
